FAERS Safety Report 9773263 (Version 2)
Quarter: 2014Q1

REPORT INFORMATION
  Report Type: Spontaneous
  Country: BR (occurrence: BR)
  Receive Date: 20131219
  Receipt Date: 20140122
  Transmission Date: 20141002
  Serious: Yes (Hospitalization, Other)
  Sender: FDA-Public Use
  Company Number: BR-ASTRAZENECA-2013SE91213

PATIENT
  Age: 72 Year
  Sex: Male
  Weight: 56.7 kg

DRUGS (13)
  1. ATACAND [Suspect]
     Indication: HYPERTENSION
     Route: 048
     Dates: start: 2010
  2. SELOZOK [Suspect]
     Route: 048
     Dates: start: 2013
  3. OMEPRAZOLE [Suspect]
     Route: 048
     Dates: start: 2013
  4. TREZOR [Suspect]
     Route: 048
     Dates: start: 2013
  5. CHEMOTHERAPY [Concomitant]
     Indication: THROAT CANCER
     Dosage: WEEKLY
     Route: 042
     Dates: start: 201306, end: 201312
  6. RADIOTHERAPY [Concomitant]
     Indication: THROAT CANCER
     Dosage: DAILY
     Dates: start: 201306, end: 201312
  7. PURAN [Concomitant]
     Dates: start: 2013
  8. MOTILIUM [Concomitant]
     Dosage: TID
     Dates: start: 2013
  9. DRAMIN [Concomitant]
     Dosage: BID
     Dates: start: 2013
  10. COMBODART [Concomitant]
     Indication: PROSTATOMEGALY
     Dates: start: 2013
  11. UNSPECIFIED COMPOUNDED MEDICATION [Concomitant]
     Dates: start: 2013
  12. ASPIRINA PREVENT [Concomitant]
     Dates: start: 2013
  13. BETANECOL [Concomitant]
     Indication: HYPOTONIC URINARY BLADDER
     Dates: start: 2013

REACTIONS (8)
  - Throat cancer [Not Recovered/Not Resolved]
  - Myocardial infarction [Recovered/Resolved]
  - Urinary tract infection [Recovering/Resolving]
  - Radiation skin injury [Recovered/Resolved]
  - Hypophagia [Recovered/Resolved]
  - Asthenia [Recovered/Resolved]
  - Acne [Recovered/Resolved]
  - Weight decreased [Not Recovered/Not Resolved]
